FAERS Safety Report 7442674-7 (Version None)
Quarter: 2011Q2

REPORT INFORMATION
  Report Type: 
  Country: None (occurrence: None)
  Receive Date: 20110428
  Receipt Date: 20110420
  Transmission Date: 20111010
  Serious: Yes (Other)
  Sender: FDA-Public Use
  Company Number: US-PFIZER INC-2011089621

PATIENT
  Sex: Female

DRUGS (2)
  1. GEODON [Suspect]
     Dosage: 80 MG, UNK
  2. GEODON [Suspect]
     Indication: BIPOLAR DISORDER
     Dosage: 100 MG, UNK

REACTIONS (2)
  - AKATHISIA [None]
  - AGITATION [None]
